FAERS Safety Report 6881877-7 (Version None)
Quarter: 2010Q3

REPORT INFORMATION
  Report Type: 
  Country: None (occurrence: None)
  Receive Date: 20100729
  Receipt Date: 20100723
  Transmission Date: 20110219
  Serious: Yes (Other)
  Sender: FDA-Public Use
  Company Number: US-BAYER-201028890NA

PATIENT
  Sex: Female

DRUGS (1)
  1. YAZ [Suspect]
     Indication: CONTRACEPTION
     Route: 048

REACTIONS (6)
  - CHOLELITHIASIS [None]
  - EATING DISORDER [None]
  - FOOD ALLERGY [None]
  - MUSCULOSKELETAL CHEST PAIN [None]
  - NERVOUS SYSTEM DISORDER [None]
  - SLEEP DISORDER [None]
